FAERS Safety Report 15857074 (Version 1)
Quarter: 2019Q1

REPORT INFORMATION
  Report Type: Spontaneous
  Country: US (occurrence: US)
  Receive Date: 20190122
  Receipt Date: 20190122
  Transmission Date: 20190417
  Serious: Yes (Hospitalization)
  Sender: FDA-Public Use
  Company Number: None

PATIENT
  Age: 77 Year
  Sex: Male
  Weight: 103.5 kg

DRUGS (11)
  1. RANOLAZINE. [Concomitant]
     Active Substance: RANOLAZINE
  2. APIXABAN [Suspect]
     Active Substance: APIXABAN
     Indication: ATRIAL FIBRILLATION
     Route: 048
     Dates: start: 20170427, end: 20180822
  3. TICAGRELOR. [Suspect]
     Active Substance: TICAGRELOR
     Indication: MYOCARDIAL INFARCTION
     Dates: start: 20171027, end: 20180822
  4. ALFUZOSIN [Concomitant]
     Active Substance: ALFUZOSIN
  5. LEVEMIR [Concomitant]
     Active Substance: INSULIN DETEMIR
  6. SPIRONOLACTONE. [Concomitant]
     Active Substance: SPIRONOLACTONE
  7. ATORVASTATIN [Concomitant]
     Active Substance: ATORVASTATIN
  8. EZETIMIBE. [Concomitant]
     Active Substance: EZETIMIBE
  9. PANTOPRAZOLE [Concomitant]
     Active Substance: PANTOPRAZOLE
  10. AMIODARONE [Concomitant]
     Active Substance: AMIODARONE
  11. METOPROLOL. [Concomitant]
     Active Substance: METOPROLOL

REACTIONS (5)
  - Fatigue [None]
  - Dyspnoea [None]
  - Rectal haemorrhage [None]
  - Dizziness [None]
  - Blood creatine increased [None]

NARRATIVE: CASE EVENT DATE: 20180816
